FAERS Safety Report 9228086 (Version 1)
Quarter: 2013Q1

REPORT INFORMATION
  Report Type: Spontaneous
  Country: US (occurrence: None)
  Receive Date: 20121023
  Receipt Date: 20121023
  Transmission Date: 20140127
  Serious: Yes (Other)
  Sender: FDA-Public Use
  Company Number: PHEH2011US012647

PATIENT
  Sex: 0

DRUGS (1)
  1. VIVELLE DOT [Suspect]

REACTIONS (3)
  - Migraine with aura [None]
  - Skin disorder [None]
  - Weight decreased [None]
